FAERS Safety Report 6445371-X (Version None)
Quarter: 2009Q4

REPORT INFORMATION
  Report Type: 
  Country: None (occurrence: None)
  Receive Date: 20091118
  Receipt Date: 20091104
  Transmission Date: 20100525
  Serious: Yes (Hospitalization)
  Sender: FDA-Public Use
  Company Number: ES-B.I. PHARMACEUTICALS,INC./RIDGEFIELD-2009-DE-06902GD

PATIENT
  Age: 56 Year
  Sex: Male

DRUGS (2)
  1. CLONIDINE [Suspect]
     Indication: NEURALGIA
  2. MORPHINE [Suspect]
     Indication: NEURALGIA

REACTIONS (1)
  - INFUSION SITE MASS [None]
